FAERS Safety Report 7540800-2 (Version None)
Quarter: 2011Q2

REPORT INFORMATION
  Report Type: 
  Country: None (occurrence: None)
  Receive Date: 20110610
  Receipt Date: 20110606
  Transmission Date: 20111010
  Serious: Yes (Disabling, Other)
  Sender: FDA-Public Use
  Company Number: FI-PFIZER INC-2011016914

PATIENT
  Age: 71 Year
  Sex: Female

DRUGS (58)
  1. VISCOTEARS [Concomitant]
     Dosage: UNK
  2. COSOPT [Concomitant]
     Dosage: UNK
  3. BLOCANOL [Concomitant]
     Dosage: UNK
  4. AVAMYS [Concomitant]
     Dosage: UNK
  5. OFTAN-DEXA [Concomitant]
  6. ULTRACORTENOL [Concomitant]
  7. KEFEXIN [Concomitant]
     Dosage: UNK
     Dates: start: 20100514, end: 20100531
  8. CLINDAMYCIN HCL [Suspect]
     Dosage: UNK
  9. OXYCODONE HCL [Suspect]
  10. FML LIQUIFILM [Concomitant]
     Dosage: UNK
  11. KALCIPOS-D [Concomitant]
     Dosage: UNK
  12. DICLOFENAC SODIUM [Concomitant]
  13. ZINACEF [Suspect]
  14. ACETAMINOPHEN [Concomitant]
     Dosage: UNK
  15. TEMGESIC [Concomitant]
     Dosage: UNK
  16. PENOMAX [Concomitant]
     Dosage: 400 MG, 2X/DAY
     Dates: start: 20101220, end: 20110121
  17. AMLODIPINE BESILATE [Concomitant]
     Dosage: UNK
  18. ARTELAC [Concomitant]
  19. OFTAQUIX [Concomitant]
  20. IOPIDINE [Concomitant]
  21. LUMIGAN [Concomitant]
  22. KEFALEX [Concomitant]
     Dosage: UNK
     Dates: start: 20100819, end: 20100825
  23. OFTAGEL [Concomitant]
     Dosage: UNK
  24. BUPRENORPHINE [Concomitant]
     Dosage: UNK
  25. ORUDIS [Concomitant]
  26. OFTAN-AKVAKOL [Concomitant]
  27. TRUSOPT [Concomitant]
  28. V-PEN [Concomitant]
     Dosage: UNK
     Dates: start: 20090528, end: 20090603
  29. LYRICA [Suspect]
     Indication: PAIN
     Dosage: 2 CAPSULES
     Dates: start: 20110120, end: 20110120
  30. ATACAND [Concomitant]
     Dosage: UNK
  31. PANACOD [Concomitant]
  32. HUMIRA [Concomitant]
  33. FORTEO [Concomitant]
     Dosage: UNK
  34. ALPHAGAN [Concomitant]
  35. AZOPT [Concomitant]
  36. DOXIMYCIN [Suspect]
     Dosage: UNK
  37. ALENDRONATE SODIUM [Concomitant]
  38. FUCIDINE CAP [Concomitant]
     Dosage: UNK
  39. CALCIUM CARBONATE [Concomitant]
     Dosage: UNK
  40. OFTAN-DEXA-CHLORA [Concomitant]
  41. FOTIL FORTE [Concomitant]
  42. OFTAN-A-PANT [Concomitant]
  43. OXYCODONE HCL [Concomitant]
     Dosage: UNK
     Dates: start: 20110117
  44. COLECALCIFEROL [Concomitant]
     Dosage: UNK
  45. NEXIUM [Concomitant]
     Dosage: UNK
     Dates: start: 20101221, end: 20110216
  46. METOPROLOL SUCCINATE [Concomitant]
     Dosage: UNK
  47. FOSAMAX [Concomitant]
  48. OFTAN-CHLORA [Concomitant]
  49. PRED FORTE [Concomitant]
  50. TRAMADOL HYDROCHLORIDE [Suspect]
     Dosage: UNK
  51. PARA-TABS [Concomitant]
     Dosage: UNK
     Dates: end: 20110121
  52. OXYCONTIN [Concomitant]
     Dosage: UNK MG, UNK
     Dates: start: 20110117
  53. ARCOXIA [Concomitant]
     Dosage: UNK
  54. ARAVA [Concomitant]
     Dosage: UNK
  55. MIACALCIN [Concomitant]
     Dosage: UNK
     Route: 045
  56. KLEXANE [Concomitant]
     Dosage: UNK
     Dates: start: 20110113, end: 20110216
  57. VEXOL [Concomitant]
  58. MINIMS PHENYLEPHRINE [Concomitant]

REACTIONS (3)
  - VISUAL IMPAIRMENT [None]
  - DRUG HYPERSENSITIVITY [None]
  - MALAISE [None]
